FAERS Safety Report 8310184-0 (Version None)
Quarter: 2012Q2

REPORT INFORMATION
  Report Type: 
  Country: None (occurrence: None)
  Receive Date: 20120425
  Receipt Date: 20120417
  Transmission Date: 20120825
  Serious: No
  Sender: FDA-Public Use
  Company Number: US-PFIZER INC-2012097343

PATIENT
  Age: 57 Year
  Sex: Male

DRUGS (3)
  1. NITROGLYCERIN [Concomitant]
     Dosage: EVERY 2-3 MONTHS, AS NEEDED
  2. VIAGRA [Suspect]
     Dosage: 1/2 TABLET 2 TIMES PER WEEK
  3. AMLODIPINE [Concomitant]

REACTIONS (5)
  - ERECTILE DYSFUNCTION [None]
  - HEADACHE [None]
  - FLUSHING [None]
  - DRUG INEFFECTIVE [None]
  - DYSPNOEA [None]
